FAERS Safety Report 8816014 (Version 2)
Quarter: 2012Q4

REPORT INFORMATION
  Report Type: 
  Country: GB (occurrence: GB)
  Receive Date: 20120928
  Receipt Date: 20121015
  Transmission Date: 20130627
  Serious: Yes (Death, Hospitalization, Other)
  Sender: FDA-Public Use
  Company Number: GB-B.I. PHARMACEUTICALS,INC./RIDGEFIELD-2012-UK-01254UK

PATIENT
  Sex: Male

DRUGS (9)
  1. DABIGATRAN [Suspect]
     Indication: CARDIAC FAILURE
     Dosage: 300 mg
     Route: 048
     Dates: start: 2011, end: 201208
  2. DABIGATRAN [Suspect]
     Indication: MYOCARDIAL INFARCTION
  3. DABIGATRAN [Suspect]
     Indication: TACHYARRHYTHMIA
  4. ASPIRIN [Suspect]
     Indication: ACUTE CORONARY SYNDROME
     Dosage: 75 mg
     Route: 048
     Dates: start: 201207
  5. AMIODARONE [Concomitant]
  6. EPLERENONE [Concomitant]
  7. FUROSEMIDE [Concomitant]
  8. RAMIPRIL [Concomitant]
  9. SERTRALINE [Concomitant]

REACTIONS (2)
  - Death [Fatal]
  - Haemorrhage [Recovered/Resolved]
